FAERS Safety Report 8218763-6 (Version None)
Quarter: 2012Q1

REPORT INFORMATION
  Report Type: 
  Country: None (occurrence: None)
  Receive Date: 20120319
  Receipt Date: 20120312
  Transmission Date: 20120608
  Serious: Yes (Other)
  Sender: FDA-Public Use
  Company Number: PHEH2012US002327

PATIENT
  Sex: Female
  Weight: 63.492 kg

DRUGS (3)
  1. GABAPENTIN [Concomitant]
     Indication: PARAESTHESIA
     Dosage: 300 MG, TID
     Route: 048
  2. GILENYA [Suspect]
     Indication: MULTIPLE SCLEROSIS
     Dosage: 0.5 MG, QD
     Route: 048
     Dates: start: 20120116, end: 20120201
  3. LYRICA [Concomitant]
     Indication: PARAESTHESIA
     Dosage: 150 MG, BID
     Route: 048

REACTIONS (8)
  - PRESYNCOPE [None]
  - FATIGUE [None]
  - CHEST DISCOMFORT [None]
  - NAUSEA [None]
  - BLOOD PRESSURE DECREASED [None]
  - INFLUENZA LIKE ILLNESS [None]
  - SOMNOLENCE [None]
  - DIZZINESS [None]
